FAERS Safety Report 19909856 (Version 3)
Quarter: 2022Q4

REPORT INFORMATION
  Report Type: Spontaneous
  Country: US (occurrence: US)
  Receive Date: 20211003
  Receipt Date: 20221125
  Transmission Date: 20230113
  Serious: Yes (Other)
  Sender: FDA-Public Use
  Company Number: US-SA-SAC20210929001034

PATIENT
  Sex: Male

DRUGS (1)
  1. DUPIXENT [Suspect]
     Active Substance: DUPILUMAB
     Indication: Dermatitis allergic
     Dosage: 300 MG, QOW
     Route: 058

REACTIONS (8)
  - Breast cancer [Not Recovered/Not Resolved]
  - Bone cancer metastatic [Not Recovered/Not Resolved]
  - Dyspnoea [Unknown]
  - Dry skin [Unknown]
  - Dysphagia [Unknown]
  - Eczema [Unknown]
  - Product dose omission issue [Unknown]
  - Product dose omission issue [Unknown]
